FAERS Safety Report 9176080 (Version 1)
Quarter: 2013Q1

REPORT INFORMATION
  Report Type: Spontaneous
  Country: US (occurrence: US)
  Receive Date: 20130319
  Receipt Date: 20130319
  Transmission Date: 20140127
  Serious: Yes (Other)
  Sender: FDA-Public Use
  Company Number: US-RB-051078-13

PATIENT
  Age: 4 Year
  Sex: Male

DRUGS (1)
  1. DELSYM CHILDREN GRAPE [Suspect]
     Indication: PRODUCT USED FOR UNKNOWN INDICATION
     Dosage: PATIENT DRANK ALMOST AN ENTIRE BOTTLE OF DRUG ON 03/MAR/2013.
     Route: 048

REACTIONS (3)
  - Hallucination [Recovered/Resolved]
  - Accidental overdose [Recovered/Resolved]
  - Abnormal behaviour [Recovered/Resolved]
